FAERS Safety Report 4684375-4 (Version None)
Quarter: 2005Q2

REPORT INFORMATION
  Report Type: 
  Country: None (occurrence: None)
  Receive Date: 20050531
  Receipt Date: 20041015
  Transmission Date: 20051028
  Serious: Yes (Hospitalization)
  Sender: FDA-Public Use
  Company Number: USA041081322

PATIENT
  Age: 34 Year
  Sex: Female

DRUGS (4)
  1. ZYPREXA [Suspect]
     Indication: SCHIZOPHRENIA
     Dosage: 40 MG DAY
  2. EFFEXOR XR [Concomitant]
  3. WELLBUTRIN SR [Concomitant]
  4. ESKALITH [Concomitant]

REACTIONS (2)
  - DIABETIC KETOACIDOSIS [None]
  - PRESCRIBED OVERDOSE [None]
